FAERS Safety Report 21137949 (Version 1)
Quarter: 2022Q3

REPORT INFORMATION
  Report Type: Spontaneous
  Country: GB (occurrence: GB)
  Receive Date: 20220727
  Receipt Date: 20220727
  Transmission Date: 20221026
  Serious: Yes (Hospitalization, Other)
  Sender: FDA-Public Use
  Company Number: GB-BAYER-2022A097948

PATIENT
  Age: 38 Year
  Sex: Female

DRUGS (1)
  1. CIPROFLOXACIN [Suspect]
     Active Substance: CIPROFLOXACIN
     Indication: Urinary tract infection
     Dosage: UNK

REACTIONS (6)
  - Nervous system disorder [Unknown]
  - Mitochondrial toxicity [Unknown]
  - Pain [Unknown]
  - Burning sensation [Unknown]
  - Insomnia [Unknown]
  - Quality of life decreased [Unknown]
